FAERS Safety Report 21289532 (Version 2)
Quarter: 2023Q1

REPORT INFORMATION
  Report Type: Report from Study
  Country: US (occurrence: US)
  Receive Date: 20220902
  Receipt Date: 20230217
  Transmission Date: 20230417
  Serious: Yes (Other)
  Sender: FDA-Public Use
  Company Number: US-TAKEDA-2022TUS061220

PATIENT
  Age: 75 Year
  Sex: Male

DRUGS (32)
  1. TEDUGLUTIDE [Suspect]
     Active Substance: TEDUGLUTIDE
     Indication: Short-bowel syndrome
     Dosage: 1.65 MILLIGRAM, QD
     Route: 042
     Dates: start: 20140407, end: 20140604
  2. TEDUGLUTIDE [Suspect]
     Active Substance: TEDUGLUTIDE
     Indication: Short-bowel syndrome
     Dosage: 1.65 MILLIGRAM, QD
     Route: 042
     Dates: start: 20140407, end: 20140604
  3. TEDUGLUTIDE [Suspect]
     Active Substance: TEDUGLUTIDE
     Indication: Short-bowel syndrome
     Dosage: 1.65 MILLIGRAM, QD
     Route: 042
     Dates: start: 20140407, end: 20140604
  4. TEDUGLUTIDE [Suspect]
     Active Substance: TEDUGLUTIDE
     Indication: Short-bowel syndrome
     Dosage: 1.65 MILLIGRAM, QD
     Route: 042
     Dates: start: 20140407, end: 20140604
  5. TEDUGLUTIDE [Suspect]
     Active Substance: TEDUGLUTIDE
     Dosage: 2.40 MILLIGRAM, QD
     Route: 042
     Dates: start: 20140605, end: 20140629
  6. TEDUGLUTIDE [Suspect]
     Active Substance: TEDUGLUTIDE
     Dosage: 2.40 MILLIGRAM, QD
     Route: 042
     Dates: start: 20140605, end: 20140629
  7. TEDUGLUTIDE [Suspect]
     Active Substance: TEDUGLUTIDE
     Dosage: 2.40 MILLIGRAM, QD
     Route: 042
     Dates: start: 20140605, end: 20140629
  8. TEDUGLUTIDE [Suspect]
     Active Substance: TEDUGLUTIDE
     Dosage: 2.40 MILLIGRAM, QD
     Route: 042
     Dates: start: 20140605, end: 20140629
  9. TEDUGLUTIDE [Suspect]
     Active Substance: TEDUGLUTIDE
     Dosage: 3.25 MILLIGRAM, QD
     Route: 042
     Dates: start: 20140630, end: 20140801
  10. TEDUGLUTIDE [Suspect]
     Active Substance: TEDUGLUTIDE
     Dosage: 3.25 MILLIGRAM, QD
     Route: 042
     Dates: start: 20140630, end: 20140801
  11. TEDUGLUTIDE [Suspect]
     Active Substance: TEDUGLUTIDE
     Dosage: 3.25 MILLIGRAM, QD
     Route: 042
     Dates: start: 20140630, end: 20140801
  12. TEDUGLUTIDE [Suspect]
     Active Substance: TEDUGLUTIDE
     Dosage: 3.25 MILLIGRAM, QD
     Route: 042
     Dates: start: 20140630, end: 20140801
  13. TEDUGLUTIDE [Suspect]
     Active Substance: TEDUGLUTIDE
     Dosage: 3.25 MILLIGRAM, QD
     Route: 042
     Dates: start: 20140804, end: 20150928
  14. TEDUGLUTIDE [Suspect]
     Active Substance: TEDUGLUTIDE
     Dosage: 3.25 MILLIGRAM, QD
     Route: 042
     Dates: start: 20140804, end: 20150928
  15. TEDUGLUTIDE [Suspect]
     Active Substance: TEDUGLUTIDE
     Dosage: 3.25 MILLIGRAM, QD
     Route: 042
     Dates: start: 20140804, end: 20150928
  16. TEDUGLUTIDE [Suspect]
     Active Substance: TEDUGLUTIDE
     Dosage: 3.25 MILLIGRAM, QD
     Route: 042
     Dates: start: 20140804, end: 20150928
  17. TEDUGLUTIDE [Suspect]
     Active Substance: TEDUGLUTIDE
     Dosage: 3.25 MILLIGRAM, QD
     Route: 042
     Dates: start: 20151028, end: 20180529
  18. TEDUGLUTIDE [Suspect]
     Active Substance: TEDUGLUTIDE
     Dosage: 3.25 MILLIGRAM, QD
     Route: 042
     Dates: start: 20151028, end: 20180529
  19. TEDUGLUTIDE [Suspect]
     Active Substance: TEDUGLUTIDE
     Dosage: 3.25 MILLIGRAM, QD
     Route: 042
     Dates: start: 20151028, end: 20180529
  20. TEDUGLUTIDE [Suspect]
     Active Substance: TEDUGLUTIDE
     Dosage: 3.25 MILLIGRAM, QD
     Route: 042
     Dates: start: 20151028, end: 20180529
  21. TEDUGLUTIDE [Suspect]
     Active Substance: TEDUGLUTIDE
     Dosage: 1 MILLIGRAM, QD
     Route: 042
     Dates: start: 20180530, end: 20200511
  22. TEDUGLUTIDE [Suspect]
     Active Substance: TEDUGLUTIDE
     Dosage: 1 MILLIGRAM, QD
     Route: 042
     Dates: start: 20180530, end: 20200511
  23. TEDUGLUTIDE [Suspect]
     Active Substance: TEDUGLUTIDE
     Dosage: 1 MILLIGRAM, QD
     Route: 042
     Dates: start: 20180530, end: 20200511
  24. TEDUGLUTIDE [Suspect]
     Active Substance: TEDUGLUTIDE
     Dosage: 1 MILLIGRAM, QD
     Route: 042
     Dates: start: 20180530, end: 20200511
  25. TEDUGLUTIDE [Suspect]
     Active Substance: TEDUGLUTIDE
     Dosage: 1 MILLIGRAM, QD
     Route: 042
     Dates: start: 20200514
  26. TEDUGLUTIDE [Suspect]
     Active Substance: TEDUGLUTIDE
     Dosage: 1 MILLIGRAM, QD
     Route: 042
     Dates: start: 20200514
  27. TEDUGLUTIDE [Suspect]
     Active Substance: TEDUGLUTIDE
     Dosage: 1 MILLIGRAM, QD
     Route: 042
     Dates: start: 20200514
  28. TEDUGLUTIDE [Suspect]
     Active Substance: TEDUGLUTIDE
     Dosage: 1 MILLIGRAM, QD
     Route: 042
     Dates: start: 20200514
  29. SODIUM BICARBONATE [Concomitant]
     Active Substance: SODIUM BICARBONATE
     Indication: Acid base balance abnormal
     Dosage: 650 MILLIGRAM, TID
     Route: 048
     Dates: start: 20210721
  30. MESALAMINE [Concomitant]
     Active Substance: MESALAMINE
     Indication: Colitis ulcerative
     Dosage: 1200 MILLIGRAM, QD
     Route: 048
     Dates: start: 20210426
  31. OLODATEROL\TIOTROPIUM [Concomitant]
     Active Substance: OLODATEROL\TIOTROPIUM
     Indication: Dyspnoea
     Dosage: 2 DOSAGE FORM, QD
     Route: 050
     Dates: start: 20210616
  32. ERGOCALCIFEROL [Concomitant]
     Active Substance: ERGOCALCIFEROL
     Indication: Malnutrition
     Dosage: UNK UNK, 1/WEEK
     Route: 048
     Dates: start: 20210811

REACTIONS (1)
  - Vascular device infection [Recovered/Resolved]

NARRATIVE: CASE EVENT DATE: 20220815
